FAERS Safety Report 6967527-X (Version None)
Quarter: 2010Q3

REPORT INFORMATION
  Report Type: 
  Country: None (occurrence: None)
  Receive Date: 20100823
  Receipt Date: 20100427
  Transmission Date: 20110219
  Serious: No
  Sender: FDA-Public Use
  Company Number: 011005

PATIENT
  Sex: Female
  Weight: 99.7 kg

DRUGS (2)
  1. CIMZIA [Suspect]
     Indication: CROHN'S DISEASE
     Dosage: (400 MG SUBCUTANEOUS)
     Route: 058
     Dates: start: 20090526
  2. HYDROCODONE [Concomitant]

REACTIONS (2)
  - DRUG EFFECT DECREASED [None]
  - MIGRAINE [None]
